FAERS Safety Report 23369383 (Version 1)
Quarter: 2024Q1

REPORT INFORMATION
  Report Type: Spontaneous
  Country: US (occurrence: None)
  Receive Date: 20240104
  Receipt Date: 20240104
  Transmission Date: 20240410
  Serious: Yes (Disabling)
  Sender: FDA-Public Use
  Company Number: None

PATIENT
  Age: 69 Year
  Sex: Female
  Weight: 48.99 kg

DRUGS (5)
  1. ARIPIPRAZOLE [Suspect]
     Active Substance: ARIPIPRAZOLE
     Indication: Bipolar I disorder
     Dosage: OTHER QUANTITY : 1/2 PILL;?FREQUENCY : DAILY;?
     Route: 048
     Dates: start: 2020, end: 202311
  2. HALOPERIDOL [Suspect]
     Active Substance: HALOPERIDOL
  3. FOSAMAX [Concomitant]
     Active Substance: ALENDRONATE SODIUM
  4. ABILIFY [Concomitant]
     Active Substance: ARIPIPRAZOLE
  5. BENADRYL [Concomitant]
     Active Substance: DIPHENHYDRAMINE HYDROCHLORIDE

REACTIONS (22)
  - Insomnia [None]
  - Lip swelling [None]
  - Urticaria [None]
  - Urticaria [None]
  - Periorbital swelling [None]
  - Pruritus [None]
  - Fatigue [None]
  - Asthenia [None]
  - Vision blurred [None]
  - Dizziness [None]
  - Headache [None]
  - Nervousness [None]
  - Balance disorder [None]
  - Anxiety [None]
  - Muscle spasms [None]
  - Muscle spasms [None]
  - Musculoskeletal stiffness [None]
  - Dyskinesia [None]
  - Speech disorder [None]
  - Mania [None]
  - Seizure [None]
  - Psychiatric symptom [None]

NARRATIVE: CASE EVENT DATE: 20210101
